FAERS Safety Report 6959007-2 (Version None)
Quarter: 2010Q3

REPORT INFORMATION
  Report Type: 
  Country: None (occurrence: None)
  Receive Date: 20100831
  Receipt Date: 20100823
  Transmission Date: 20110219
  Serious: Yes (Death)
  Sender: FDA-Public Use
  Company Number: FR-ELI_LILLY_AND_COMPANY-FR201008007176

PATIENT
  Sex: Female

DRUGS (3)
  1. GEMCITABINE HCL [Suspect]
     Indication: LEIOMYOSARCOMA
     Dosage: 900 MG/M2, D1 AND D8 EVERY 21 DAYS
  2. DOCETAXEL [Concomitant]
     Indication: LEIOMYOSARCOMA
     Dosage: 100 MG/M2, D8 EVERY 21 DAYS
  3. LENOGRASTIM [Concomitant]
     Dosage: UNK, D9 - D15 EVERY 21 DAYS

REACTIONS (1)
  - THROMBOCYTOPENIA [None]
